FAERS Safety Report 10423888 (Version 1)
Quarter: 2014Q3

REPORT INFORMATION
  Report Type: Spontaneous
  Country: US (occurrence: None)
  Receive Date: 20140722
  Receipt Date: 20140722
  Transmission Date: 20150326
  Serious: No
  Sender: FDA-Public Use
  Company Number: 163-10004-14061997

PATIENT
  Age: 56 Year
  Sex: Female
  Weight: 84.82 kg

DRUGS (2)
  1. OTEZLA [Suspect]
     Active Substance: APREMILAST
     Indication: PSORIATIC ARTHROPATHY
     Dosage: STARTER PACK
     Dates: start: 201406
  2. DIOVAN [Concomitant]
     Active Substance: VALSARTAN

REACTIONS (2)
  - Respiratory tract congestion [None]
  - Insomnia [None]

NARRATIVE: CASE EVENT DATE: 20140610
